FAERS Safety Report 6033964-3 (Version None)
Quarter: 2009Q1

REPORT INFORMATION
  Report Type: 
  Country: None (occurrence: None)
  Receive Date: 20090112
  Receipt Date: 20090107
  Transmission Date: 20090719
  Serious: Yes (Death, Other)
  Sender: FDA-Public Use
  Company Number: PHHY2009MX00813

PATIENT
  Sex: Female

DRUGS (1)
  1. DIOVAN HCT [Suspect]
     Indication: HYPERTENSION
     Dosage: 1 TAB (160 MG VALSARTAN/25 MG HYDROCHLOROTHIAZIDE) PER DAY
     Route: 048
     Dates: start: 20050101

REACTIONS (5)
  - ANAEMIA [None]
  - ASPIRATION [None]
  - BLOOD ELECTROLYTES ABNORMAL [None]
  - MYOCARDIAL INFARCTION [None]
  - RENAL DISORDER [None]
